FAERS Safety Report 20087210 (Version 2)
Quarter: 2021Q4

REPORT INFORMATION
  Report Type: Spontaneous
  Country: CZ (occurrence: CZ)
  Receive Date: 20211118
  Receipt Date: 20211124
  Transmission Date: 20220304
  Serious: Yes (Other)
  Sender: FDA-Public Use
  Company Number: CZ-KOREA IPSEN Pharma-2021-27908

PATIENT
  Age: 39 Year
  Sex: Male

DRUGS (10)
  1. LANREOTIDE ACETATE [Suspect]
     Active Substance: LANREOTIDE ACETATE
     Indication: Malignant mediastinal neoplasm
     Dosage: 120 MG EVERY 4 WEEKS
     Route: 058
     Dates: start: 202101, end: 202101
  2. LANREOTIDE ACETATE [Suspect]
     Active Substance: LANREOTIDE ACETATE
     Indication: Off label use
     Dosage: 120 MG EVERY 2 WEEKS
     Route: 058
     Dates: start: 202101
  3. XGEVA [Concomitant]
     Active Substance: DENOSUMAB
     Indication: Neuroendocrine carcinoma metastatic
  4. CALCIUM [Concomitant]
     Active Substance: CALCIUM
  5. VITAMIN D [Concomitant]
     Active Substance: VITAMIN D NOS
  6. PANCRELIPASE [Concomitant]
     Active Substance: PANCRELIPASE
  7. DACARBAZINE [Concomitant]
     Active Substance: DACARBAZINE
     Dates: start: 202105
  8. KETOCONAZOLE [Concomitant]
     Active Substance: KETOCONAZOLE
     Dosage: 200 MG TWICE DAILY
  9. KETOCONAZOLE [Concomitant]
     Active Substance: KETOCONAZOLE
     Dosage: GRADUALLY INCREASED TO 4 TABLETS PER DAY
     Dates: end: 202106
  10. METOPIRONE [Concomitant]
     Active Substance: METYRAPONE
     Dates: start: 202106

REACTIONS (3)
  - Malignant neoplasm progression [Unknown]
  - Off label use [Unknown]
  - Off label use [Unknown]

NARRATIVE: CASE EVENT DATE: 20210101
